FAERS Safety Report 9293121 (Version 2)
Quarter: 2013Q2

REPORT INFORMATION
  Report Type: Spontaneous
  Country: US (occurrence: None)
  Receive Date: 20130514
  Receipt Date: 20130613
  Transmission Date: 20140414
  Serious: No
  Sender: FDA-Public Use
  Company Number: 1305-604

PATIENT
  Age: 81 Year
  Sex: Female

DRUGS (1)
  1. EYLEA (AFLIBERCEPT) (INJECTION) (AFLIBERCEPT) [Suspect]
     Indication: AGE-RELATED MACULAR DEGENERATION
     Dosage: 2 MG, INTRAVITREAL
     Dates: start: 20130312, end: 20130409

REACTIONS (5)
  - Dyspnoea [None]
  - Eye swelling [None]
  - Eye irritation [None]
  - Eye pain [None]
  - Eye irritation [None]
